FAERS Safety Report 10469350 (Version 1)
Quarter: 2014Q3

REPORT INFORMATION
  Report Type: Report from Study
  Country: US (occurrence: US)
  Receive Date: 20140923
  Receipt Date: 20140923
  Transmission Date: 20150326
  Serious: Yes (Hospitalization)
  Sender: FDA-Public Use
  Company Number: PHEH2014US018058

PATIENT
  Sex: Female
  Weight: 89.8 kg

DRUGS (15)
  1. CLOZARIL [Suspect]
     Active Substance: CLOZAPINE
     Dosage: 50 MG, QHS
  2. DEPAKOTE [Suspect]
     Active Substance: DIVALPROEX SODIUM
     Indication: THINKING ABNORMAL
  3. ZYPREXA [Concomitant]
     Active Substance: OLANZAPINE
     Indication: THINKING ABNORMAL
  4. SEROQUEL [Concomitant]
     Active Substance: QUETIAPINE FUMARATE
     Indication: MOOD SWINGS
  5. ZYPREXA [Concomitant]
     Active Substance: OLANZAPINE
     Indication: DELUSION
  6. DEPAKOTE [Suspect]
     Active Substance: DIVALPROEX SODIUM
     Indication: MOOD SWINGS
  7. ZYPREXA [Concomitant]
     Active Substance: OLANZAPINE
     Indication: SCHIZOAFFECTIVE DISORDER
     Dosage: 20 MG, QHS
     Route: 048
     Dates: start: 201407
  8. SEROQUEL [Concomitant]
     Active Substance: QUETIAPINE FUMARATE
     Indication: DELUSION
  9. CLOZARIL [Suspect]
     Active Substance: CLOZAPINE
     Dosage: 475 MG, UNK (DID WELL ON IT FOR 5 YEARS)
     Dates: end: 201407
  10. DEPAKOTE [Suspect]
     Active Substance: DIVALPROEX SODIUM
     Indication: SCHIZOAFFECTIVE DISORDER
     Dosage: 100 MG, BID
     Route: 048
     Dates: start: 2009
  11. DEPAKOTE [Suspect]
     Active Substance: DIVALPROEX SODIUM
     Indication: DELUSION
  12. SEROQUEL [Concomitant]
     Active Substance: QUETIAPINE FUMARATE
     Indication: SCHIZOAFFECTIVE DISORDER
     Dosage: 600 MG, QHS
     Dates: start: 201407
  13. ZYPREXA [Concomitant]
     Active Substance: OLANZAPINE
     Indication: MOOD SWINGS
  14. CLOZARIL [Suspect]
     Active Substance: CLOZAPINE
     Dosage: UNK
  15. SEROQUEL [Concomitant]
     Active Substance: QUETIAPINE FUMARATE
     Indication: THINKING ABNORMAL

REACTIONS (6)
  - Aphasia [Unknown]
  - Abnormal behaviour [Unknown]
  - Psychiatric decompensation [Unknown]
  - Disease recurrence [Unknown]
  - Aggression [Unknown]
  - Insomnia [Unknown]
